FAERS Safety Report 9934596 (Version 2)
Quarter: 2014Q1

REPORT INFORMATION
  Report Type: Report from Study
  Country: FR (occurrence: FR)
  Receive Date: 20140228
  Receipt Date: 20140325
  Transmission Date: 20141002
  Serious: Yes (Hospitalization)
  Sender: FDA-Public Use
  Company Number: FR-BAYER-2014-025803

PATIENT
  Age: 76 Year
  Sex: Female
  Weight: 80 kg

DRUGS (5)
  1. RIOCIGUAT (GUANYLATE CYCLASE STIMULATOR) [Suspect]
  2. PREVISCAN [Concomitant]
     Indication: PULMONARY HYPERTENSION
     Dosage: DOSE ACCORDING TO INR
     Route: 048
     Dates: start: 20121228
  3. COAPROVEL [Concomitant]
     Indication: HYPERTENSION
     Dosage: 300 MG/12.5 MG
     Route: 048
     Dates: end: 20140214
  4. PRAVASTATIN [Concomitant]
     Indication: DYSLIPIDAEMIA
     Dosage: 40 MG, QD
     Route: 048
  5. LOPRAZOLAM [Concomitant]
     Indication: INSOMNIA
     Dosage: 1 MG, QD
     Route: 048

REACTIONS (1)
  - Hypotension [Recovered/Resolved]
